FAERS Safety Report 13901706 (Version 3)
Quarter: 2017Q3

REPORT INFORMATION
  Report Type: Spontaneous
  Country: IL (occurrence: IL)
  Receive Date: 20170824
  Receipt Date: 20170925
  Transmission Date: 20171127
  Serious: Yes (Other)
  Sender: FDA-Public Use
  Company Number: IL-TAKEDA-2017TUS017587

PATIENT
  Age: 22 Year
  Sex: Female
  Weight: 82 kg

DRUGS (2)
  1. ENTYVIO [Suspect]
     Active Substance: VEDOLIZUMAB
     Indication: CROHN^S DISEASE
     Dosage: 300 MG, UNK
     Route: 042
  2. ENTYVIO [Suspect]
     Active Substance: VEDOLIZUMAB
     Dosage: 300 MG, UNK
     Route: 042

REACTIONS (2)
  - Off label use [Unknown]
  - Immune thrombocytopenic purpura [Not Recovered/Not Resolved]
